FAERS Safety Report 15290593 (Version 1)
Quarter: 2018Q3

REPORT INFORMATION
  Report Type: Spontaneous
  Country: FR (occurrence: FR)
  Receive Date: 20180817
  Receipt Date: 20180817
  Transmission Date: 20181010
  Serious: Yes (Hospitalization)
  Sender: FDA-Public Use
  Company Number: PHHY2018FR072175

PATIENT
  Age: 29 Year
  Sex: Male

DRUGS (3)
  1. REVOLADE [Suspect]
     Active Substance: ELTROMBOPAG
     Indication: BONE MARROW FAILURE
     Dosage: 75 MG, QD (75 MG / DAY THEN 150 MG DAILY AS OF 08 JUN 2018)
     Route: 048
     Dates: start: 20180528
  2. THYMOGLOBULINE [Suspect]
     Active Substance: LAPINE T-LYMPHOCYTE IMMUNE GLOBULIN
     Indication: BONE MARROW FAILURE
     Dosage: 3750 MG, CYCLIC (3500 MG ON 28 MAY 2018 AND 3750 MG FROM 29 MAY 2018TO 31 MAY 2018)
     Route: 042
     Dates: start: 20180528, end: 20180531
  3. NEORAL [Suspect]
     Active Substance: CYCLOSPORINE
     Indication: BONE MARROW FAILURE
     Dosage: 250 MG, QD (125 MG MORNING AND EVENING)
     Route: 048
     Dates: start: 20180528

REACTIONS (2)
  - Serum sickness [Recovered/Resolved]
  - Urticaria [Recovered/Resolved]

NARRATIVE: CASE EVENT DATE: 20180615
